FAERS Safety Report 8807333 (Version 1)
Quarter: 2012Q4

REPORT INFORMATION
  Report Type: 
  Country: AR (occurrence: AR)
  Receive Date: 20120925
  Receipt Date: 20120925
  Transmission Date: 20130627
  Serious: Yes (Hospitalization)
  Sender: FDA-Public Use
  Company Number: AR-WATSON-2012-16290

PATIENT
  Age: 4 Year
  Sex: Male

DRUGS (4)
  1. TACROLIMUS (UNKNOWN) [Suspect]
     Indication: IMMUNOSUPPRESSION
     Dosage: unk
     Route: 065
  2. TACROLIMUS (UNKNOWN) [Suspect]
     Indication: LIVER TRANSPLANT
  3. MEPREDNISONE [Suspect]
     Indication: IMMUNOSUPPRESSION
     Dosage: unk
     Route: 065
  4. MEPREDNISONE [Suspect]
     Indication: LIVER TRANSPLANT

REACTIONS (2)
  - Kaposi^s sarcoma [Recovered/Resolved]
  - Peritonitis [Recovered/Resolved]
